FAERS Safety Report 24928868 (Version 1)
Quarter: 2025Q1

REPORT INFORMATION
  Report Type: Spontaneous
  Country: FR (occurrence: FR)
  Receive Date: 20250205
  Receipt Date: 20250205
  Transmission Date: 20250409
  Serious: Yes (Death, Other)
  Sender: MERCK
  Company Number: None

PATIENT
  Age: 48 Year
  Sex: Female
  Weight: 49 kg

DRUGS (13)
  1. KEYTRUDA [Suspect]
     Active Substance: PEMBROLIZUMAB
     Indication: Non-small cell lung cancer
     Route: 042
     Dates: start: 20240227, end: 20241209
  2. MIANSERIN HYDROCHLORIDE [Concomitant]
     Active Substance: MIANSERIN HYDROCHLORIDE
  3. CYAMEMAZINE [Concomitant]
     Active Substance: CYAMEMAZINE
  4. OXAZEPAM [Concomitant]
     Active Substance: OXAZEPAM
  5. APIXABAN [Concomitant]
     Active Substance: APIXABAN
  6. PANTOPRAZOLE [Concomitant]
     Active Substance: PANTOPRAZOLE
  7. SKENAN [Concomitant]
     Active Substance: MORPHINE SULFATE
  8. MORPHINE SULFATE [Concomitant]
     Active Substance: MORPHINE SULFATE
  9. ZOPICLONE [Concomitant]
     Active Substance: ZOPICLONE
  10. ALBUTEROL [Concomitant]
     Active Substance: ALBUTEROL
  11. NICOTINE [Concomitant]
     Active Substance: NICOTINE
  12. ACETAMINOPHEN [Concomitant]
     Active Substance: ACETAMINOPHEN
  13. POLYETHYLENE GLYCOLS [Concomitant]
     Active Substance: POLYETHYLENE GLYCOLS

REACTIONS (2)
  - Pneumonia [Fatal]
  - Shock [Fatal]

NARRATIVE: CASE EVENT DATE: 20241214
